FAERS Safety Report 20827411 (Version 3)
Quarter: 2022Q3

REPORT INFORMATION
  Report Type: Other
  Country: CA (occurrence: None)
  Receive Date: 20220513
  Receipt Date: 20220716
  Transmission Date: 20221027
  Serious: Yes (Hospitalization, Other)
  Sender: FDA-Public Use
  Company Number: CA-ROCHE-3084467

PATIENT
  Age: 58 Year
  Sex: Female

DRUGS (2)
  1. ACTEMRA [Suspect]
     Active Substance: TOCILIZUMAB
     Indication: Rheumatoid arthritis
     Dosage: DRUG DOSE FIRST ADMINISTERED IS 162 MG MILLIGRAM(S), 0.9 ML ACTPEN
     Route: 058
     Dates: start: 20220301, end: 2022
  2. PREDNISONE [Concomitant]
     Active Substance: PREDNISONE

REACTIONS (5)
  - Diverticulitis [Unknown]
  - Diverticulitis [Unknown]
  - Enteritis infectious [Unknown]
  - Grip strength decreased [Unknown]
  - Infection [Unknown]

NARRATIVE: CASE EVENT DATE: 20220422
